FAERS Safety Report 23422990 (Version 3)
Quarter: 2024Q1

REPORT INFORMATION
  Report Type: Spontaneous
  Country: RO (occurrence: RO)
  Receive Date: 20240119
  Receipt Date: 20240227
  Transmission Date: 20240410
  Serious: Yes (Death, Hospitalization)
  Sender: FDA-Public Use
  Company Number: RO-AstraZeneca-CH-00547777A

PATIENT
  Age: 1 Year
  Sex: Female
  Weight: 9.9 kg

DRUGS (1)
  1. SOLIRIS [Suspect]
     Active Substance: ECULIZUMAB
     Indication: Atypical haemolytic uraemic syndrome
     Dosage: 300 MILLIGRAM, Q3W
     Route: 042
     Dates: start: 20231110, end: 20240114

REACTIONS (1)
  - Viral infection [Fatal]
